FAERS Safety Report 20264607 (Version 2)
Quarter: 2022Q1

REPORT INFORMATION
  Report Type: Report from Study
  Country: KR (occurrence: KR)
  Receive Date: 20211231
  Receipt Date: 20220114
  Transmission Date: 20220423
  Serious: No
  Sender: FDA-Public Use
  Company Number: KR-BoehringerIngelheim-2021-BI-141007

PATIENT
  Age: 77 Year
  Sex: Male
  Weight: 56 kg

DRUGS (3)
  1. AFATINIB [Suspect]
     Active Substance: AFATINIB
     Indication: Non-small cell lung cancer
     Route: 048
     Dates: start: 20211110, end: 20211201
  2. AFATINIB [Suspect]
     Active Substance: AFATINIB
     Route: 048
  3. AFATINIB [Suspect]
     Active Substance: AFATINIB
     Route: 048

REACTIONS (2)
  - Stomatitis [Unknown]
  - Diarrhoea [Recovered/Resolved]

NARRATIVE: CASE EVENT DATE: 20211118
